FAERS Safety Report 6129487-3 (Version None)
Quarter: 2009Q1

REPORT INFORMATION
  Report Type: 
  Country: None (occurrence: None)
  Receive Date: 20090323
  Receipt Date: 20090323
  Transmission Date: 20090719
  Serious: Yes (Death)
  Sender: FDA-Public Use
  Company Number: None

PATIENT
  Age: 18 Year
  Sex: Male
  Weight: 76.6579 kg

DRUGS (1)
  1. OPANA [Suspect]
     Dosage: 1 PILLL ONCE ENDOSINUSIAL
     Route: 006

REACTIONS (1)
  - OVERDOSE [None]
